FAERS Safety Report 7522529-X (Version None)
Quarter: 2011Q2

REPORT INFORMATION
  Report Type: 
  Country: None (occurrence: None)
  Receive Date: 20110603
  Receipt Date: 20110502
  Transmission Date: 20111010
  Serious: No
  Sender: FDA-Public Use
  Company Number: US-BAYER-2011-038433

PATIENT

DRUGS (2)
  1. ASPIRIN [Suspect]
  2. ALEVE (CAPLET) [Suspect]
     Indication: ANALGESIC THERAPY
     Route: 048

REACTIONS (1)
  - HAEMORRHAGE [None]
